FAERS Safety Report 4708303-8 (Version None)
Quarter: 2005Q3

REPORT INFORMATION
  Report Type: 
  Country: None (occurrence: None)
  Receive Date: 20050705
  Receipt Date: 20050705
  Transmission Date: 20060218
  Serious: Yes (Other)
  Sender: FDA-Public Use
  Company Number: None

PATIENT
  Age: 32 Year
  Sex: Male
  Weight: 77.1115 kg

DRUGS (1)
  1. ZOLOFT [Suspect]
     Indication: PREMATURE EJACULATION
     Dosage: 150 MG ONCE A DAY ORAL
     Route: 048

REACTIONS (3)
  - DEPRESSION [None]
  - FAMILY STRESS [None]
  - SUICIDAL IDEATION [None]
